FAERS Safety Report 7412279-2 (Version None)
Quarter: 2011Q2

REPORT INFORMATION
  Report Type: 
  Country: None (occurrence: None)
  Receive Date: 20110413
  Receipt Date: 20110401
  Transmission Date: 20111010
  Serious: Yes (Death, Other)
  Sender: FDA-Public Use
  Company Number: DE-ROCHE-768252

PATIENT
  Age: 74 Year
  Sex: Male

DRUGS (3)
  1. BONIVA [Suspect]
     Route: 042
     Dates: start: 20081113
  2. BONIVA [Suspect]
     Indication: OSTEOPOROSIS
     Route: 042
     Dates: start: 20081001
  3. CASODEX [Concomitant]
     Dates: start: 20060601

REACTIONS (3)
  - NEOPLASM [None]
  - CACHEXIA [None]
  - NEOPLASM MALIGNANT [None]
